FAERS Safety Report 8951124 (Version 2)
Quarter: 2013Q1

REPORT INFORMATION
  Report Type: Spontaneous
  Country: US (occurrence: None)
  Receive Date: 20121130
  Receipt Date: 20121217
  Transmission Date: 20140127
  Serious: Yes (Life-Threatening, Other)
  Sender: FDA-Public Use
  Company Number: AMAG201203144

PATIENT
  Age: 57 Year
  Sex: Male
  Weight: 81.6 kg

DRUGS (9)
  1. FERAHEME [Suspect]
     Indication: IRON DEFICIENCY ANAEMIA
     Dosage: 2 ML, SINGLE (60 MG), IV PUSH
     Route: 042
     Dates: start: 20121115, end: 20121115
  2. CALCIUM + VITAMIN D (CALCIUM COLECALCIFEROL) [Concomitant]
  3. NORCO (HYDROCODONE BITARTRATE, PARACETAMOL) [Concomitant]
  4. AXID (NIZATIDINE) [Concomitant]
  5. ALTACE (RAMIPRIL) [Concomitant]
  6. ROXICODONE (OXYCODONE HYDROCHLORIDE) [Concomitant]
  7. EFFEXOR (VENLAFAXINE HYDROCHLORIDE) UNKNOWN [Concomitant]
  8. DIPHENHYDRAMINE (DIPHENHYDRAMINE) [Concomitant]
  9. NORMAL SALINE (NORMAL SALINE) [Concomitant]

REACTIONS (12)
  - Oxygen saturation decreased [None]
  - Apnoea [None]
  - Unresponsive to stimuli [None]
  - Dyspnoea [None]
  - Wheezing [None]
  - Malaise [None]
  - Flushing [None]
  - Chills [None]
  - Tremor [None]
  - Blood pressure decreased [None]
  - Product colour issue [None]
  - Anaphylactic reaction [None]
